FAERS Safety Report 14184322 (Version 3)
Quarter: 2020Q2

REPORT INFORMATION
  Report Type: Spontaneous
  Country: US (occurrence: US)
  Receive Date: 20171113
  Receipt Date: 20200421
  Transmission Date: 20200713
  Serious: Yes (Death, Hospitalization, Other)
  Sender: FDA-Public Use
  Company Number: US-009507513-1711USA005065

PATIENT
  Sex: Female
  Weight: 51.7 kg

DRUGS (2)
  1. JANUVIA [Suspect]
     Active Substance: SITAGLIPTIN PHOSPHATE
     Indication: TYPE 2 DIABETES MELLITUS
     Dosage: ONCE DAILY
     Route: 048
     Dates: start: 20130301, end: 201409
  2. JANUMET [Suspect]
     Active Substance: METFORMIN HYDROCHLORIDE\SITAGLIPTIN PHOSPHATE
     Indication: TYPE 2 DIABETES MELLITUS
     Dosage: 1/2 TABLET DAILY
     Route: 048
     Dates: start: 20110228, end: 201411

REACTIONS (16)
  - Chronic kidney disease [Unknown]
  - Cataract operation [Unknown]
  - Urinary tract infection [Unknown]
  - Hypothyroidism [Unknown]
  - Pain [Unknown]
  - Prescribed underdose [Unknown]
  - Adverse event [Unknown]
  - Mineral deficiency [Unknown]
  - Constipation [Unknown]
  - Dyspnoea [Unknown]
  - Memory impairment [Unknown]
  - Limb operation [Unknown]
  - Hyperglycaemia [Unknown]
  - Pancreatic carcinoma [Fatal]
  - Back pain [Unknown]
  - Nausea [Unknown]

NARRATIVE: CASE EVENT DATE: 20110228
